FAERS Safety Report 8778091 (Version 1)
Quarter: 2012Q4

REPORT INFORMATION
  Report Type: 
  Country: DE (occurrence: DE)
  Receive Date: 20120913
  Receipt Date: 20120913
  Transmission Date: 20130627
  Serious: Yes (Hospitalization)
  Sender: FDA-Public Use
  Company Number: DE-ELI_LILLY_AND_COMPANY-DE201209001143

PATIENT
  Age: 57 Year
  Sex: Male

DRUGS (12)
  1. EFIENT [Suspect]
     Dosage: 60 mg, qd
     Dates: start: 20120826
  2. EFIENT [Suspect]
     Dosage: 10 mg, qd
  3. TICAGRELOR [Concomitant]
  4. HEPARIN [Concomitant]
  5. ASS [Concomitant]
  6. REOPRO [Concomitant]
     Indication: ACUTE CORONARY SYNDROME
     Dosage: UNK
     Dates: start: 20120826
  7. TORASEMIDE [Concomitant]
  8. HYDROCHLOROTHIAZIDE [Concomitant]
  9. RAMIPRIL [Concomitant]
  10. EPLERENONE [Concomitant]
  11. SIMVASTATIN [Concomitant]
  12. BISOPROLOL [Concomitant]

REACTIONS (1)
  - Thrombocytopenia [Recovered/Resolved]
